FAERS Safety Report 10230397 (Version 1)
Quarter: 2014Q2

REPORT INFORMATION
  Report Type: Spontaneous
  Country: US (occurrence: US)
  Receive Date: 20140611
  Receipt Date: 20140611
  Transmission Date: 20141212
  Serious: No
  Sender: FDA-Public Use
  Company Number: US-INCYTE CORPORATION-2014IN000562

PATIENT
  Sex: Female

DRUGS (15)
  1. JAKAFI [Suspect]
     Indication: MYELOFIBROSIS
     Dosage: 20 MG, BID
     Route: 048
     Dates: start: 20130110
  2. ZOCOR [Concomitant]
  3. LASIX                              /00032601/ [Concomitant]
  4. CARVEDILOL [Concomitant]
  5. ASCORBIC ACID [Concomitant]
  6. CHROMIUM PICOLINATE [Concomitant]
  7. FISH OIL [Concomitant]
  8. THERAGRAN-M                        /07499601/ [Concomitant]
  9. UBIQUINOL [Concomitant]
  10. ACIDOPHILUS [Concomitant]
  11. SAFFLOWER OIL [Concomitant]
  12. COLACE [Concomitant]
  13. VITAMINS WITH MINERALS [Concomitant]
  14. VITAMIN D3 [Concomitant]
  15. OTHER NUTRIENTS [Concomitant]

REACTIONS (1)
  - Subcutaneous abscess [Unknown]
